FAERS Safety Report 11097910 (Version 4)
Quarter: 2016Q1

REPORT INFORMATION
  Report Type: Spontaneous
  Country: US (occurrence: US)
  Receive Date: 20150507
  Receipt Date: 20160107
  Transmission Date: 20160525
  Serious: Yes (Hospitalization)
  Sender: FDA-Public Use
  Company Number: US-PFIZER INC-2015151444

PATIENT
  Age: 14 Year
  Sex: Male

DRUGS (6)
  1. ZOLOFT [Concomitant]
     Active Substance: SERTRALINE HYDROCHLORIDE
     Indication: ANXIETY
     Dosage: UNK
     Dates: start: 2012
  2. TESTOSTERONE. [Concomitant]
     Active Substance: TESTOSTERONE
     Indication: DELAYED PUBERTY
     Dosage: UNK
     Dates: start: 20150612
  3. ADDERALL [Concomitant]
     Active Substance: AMPHETAMINE ASPARTATE\AMPHETAMINE SULFATE\DEXTROAMPHETAMINE SACCHARATE\DEXTROAMPHETAMINE SULFATE
     Dosage: UNK
     Dates: start: 2013
  4. GENOTROPIN [Suspect]
     Active Substance: SOMATROPIN
     Indication: BODY HEIGHT BELOW NORMAL
     Dosage: STRENGTH 12MG
     Dates: start: 20140729
  5. GENOTROPIN [Suspect]
     Active Substance: SOMATROPIN
     Dosage: CYCLIC (INJECTING 2 MG EVERY OTHER DAY WITH 2.2 MG ON OPPOSITE DAYS, 7 DAYS PER WEEK)
     Dates: start: 201504
  6. RISPERDAL [Concomitant]
     Active Substance: RISPERIDONE
     Dosage: UNK
     Dates: start: 2013

REACTIONS (3)
  - Fall [Unknown]
  - Abdominal pain upper [Unknown]
  - Injection site pain [Unknown]

NARRATIVE: CASE EVENT DATE: 201504
